FAERS Safety Report 15563741 (Version 2)
Quarter: 2019Q1

REPORT INFORMATION
  Report Type: Spontaneous
  Country: US (occurrence: US)
  Receive Date: 20181029
  Receipt Date: 20190222
  Transmission Date: 20190417
  Serious: Yes (Hospitalization, Other)
  Sender: FDA-Public Use
  Company Number: US-PRINSTON PHARMACEUTICAL INC.-2018PRN01527

PATIENT
  Age: 77 Year
  Sex: Female
  Weight: 93.42 kg

DRUGS (2)
  1. VALSARTAN. [Suspect]
     Active Substance: VALSARTAN
     Indication: HYPERTENSION
     Dosage: UNK
     Route: 048
     Dates: start: 2014, end: 20180704
  2. VALSARTAN AND HYDROCHLOROTHIAZIDE [Suspect]
     Active Substance: HYDROCHLOROTHIAZIDE\VALSARTAN
     Indication: HYPERTENSION
     Dosage: UNK
     Route: 048
     Dates: end: 2014

REACTIONS (6)
  - Colon cancer [Recovering/Resolving]
  - Nephrolithiasis [Recovered/Resolved]
  - Large intestine polyp [Recovered/Resolved]
  - Diverticulitis [Unknown]
  - Pulmonary embolism [Unknown]
  - Myocardial calcification [Not Recovered/Not Resolved]

NARRATIVE: CASE EVENT DATE: 2017
